FAERS Safety Report 9937855 (Version 2)
Quarter: 2014Q1

REPORT INFORMATION
  Report Type: Spontaneous
  Country: US (occurrence: US)
  Receive Date: 20140303
  Receipt Date: 20140313
  Transmission Date: 20141002
  Serious: No
  Sender: FDA-Public Use
  Company Number: US-BIOGENIDEC-2014BI016463

PATIENT
  Age: 47 Year
  Sex: Female
  Weight: 77 kg

DRUGS (4)
  1. TECFIDERA [Suspect]
     Indication: PRODUCT USED FOR UNKNOWN INDICATION
     Route: 048
  2. MAXALT TAB [Concomitant]
  3. GABAPENTIN CAP [Concomitant]
  4. AMPYRA TAB [Concomitant]

REACTIONS (3)
  - Clumsiness [Unknown]
  - Fall [Unknown]
  - Multiple sclerosis [Unknown]
